FAERS Safety Report 5314077-2 (Version None)
Quarter: 2007Q2

REPORT INFORMATION
  Report Type: 
  Country: None (occurrence: None)
  Receive Date: 20070501
  Receipt Date: 20070423
  Transmission Date: 20071010
  Serious: Yes (Hospitalization)
  Sender: FDA-Public Use
  Company Number: FR-ELI_LILLY_AND_COMPANY-FR200704004770

PATIENT
  Age: 1 Day

DRUGS (3)
  1. HUMALOG [Suspect]
     Dosage: 5 IU, 3/D
     Route: 064
  2. LANTUS [Concomitant]
     Dosage: 20 IU, DAILY (1/D)
     Route: 064
     Dates: start: 20040715
  3. TARDYFERON [Concomitant]
     Route: 064

REACTIONS (2)
  - DRUG EXPOSURE DURING PREGNANCY [None]
  - VENTRICULAR SEPTAL DEFECT [None]
